FAERS Safety Report 20841578 (Version 1)
Quarter: 2022Q2

REPORT INFORMATION
  Report Type: Spontaneous
  Country: RO (occurrence: RO)
  Receive Date: 20220518
  Receipt Date: 20220518
  Transmission Date: 20220721
  Serious: Yes (Other)
  Sender: FDA-Public Use
  Company Number: RO-SAMSUNG BIOEPIS-SB-2022-10663

PATIENT
  Age: 44 Year
  Sex: Female

DRUGS (18)
  1. REMICADE [Suspect]
     Active Substance: INFLIXIMAB
     Indication: Product used for unknown indication
     Route: 042
  2. REMICADE [Suspect]
     Active Substance: INFLIXIMAB
     Dosage: FROM 2012
     Route: 042
  3. REMICADE [Suspect]
     Active Substance: INFLIXIMAB
     Dosage: INITIATED IN MAY 2011 AT WEEK ZERO THEN AT WEEK 2, AND WEEK 6
     Route: 042
  4. MESALAMINE [Suspect]
     Active Substance: MESALAMINE
     Indication: Acute haemorrhagic ulcerative colitis
     Route: 048
     Dates: start: 2005
  5. MESALAMINE [Suspect]
     Active Substance: MESALAMINE
     Indication: Colitis
     Route: 061
     Dates: start: 2009
  6. MESALAMINE [Suspect]
     Active Substance: MESALAMINE
     Dosage: INTRARECTAL
     Route: 065
     Dates: start: 2005
  7. IMURAN [Suspect]
     Active Substance: AZATHIOPRINE
     Indication: Colitis ulcerative
     Route: 065
     Dates: start: 2012
  8. IMURAN [Suspect]
     Active Substance: AZATHIOPRINE
     Indication: Colitis
  9. PREDNISOLONE ACETATE [Suspect]
     Active Substance: PREDNISOLONE ACETATE
     Indication: Acute haemorrhagic ulcerative colitis
     Route: 065
     Dates: start: 2005
  10. PREDNISOLONE ACETATE [Suspect]
     Active Substance: PREDNISOLONE ACETATE
     Indication: Colitis
     Dosage: CORTICOTHERAPY
     Route: 042
     Dates: start: 2011
  11. ADALIMUMAB [Suspect]
     Active Substance: ADALIMUMAB
     Indication: Colitis ulcerative
     Dosage: 160/80 MG
     Route: 058
  12. TOFACITINIB CITRATE [Suspect]
     Active Substance: TOFACITINIB CITRATE
     Indication: Product used for unknown indication
     Route: 065
     Dates: start: 202009
  13. TOFACITINIB CITRATE [Suspect]
     Active Substance: TOFACITINIB CITRATE
     Route: 065
     Dates: start: 202010
  14. TOFACITINIB CITRATE [Suspect]
     Active Substance: TOFACITINIB CITRATE
     Route: 065
     Dates: start: 202011
  15. MESALAMINE [Concomitant]
     Active Substance: MESALAMINE
     Indication: Colitis ulcerative
     Route: 048
  16. MESALAMINE [Concomitant]
     Active Substance: MESALAMINE
     Route: 048
  17. MESALAMINE [Concomitant]
     Active Substance: MESALAMINE
     Route: 048
  18. MESALAMINE [Concomitant]
     Active Substance: MESALAMINE
     Route: 048

REACTIONS (10)
  - Colitis [Unknown]
  - Colitis ulcerative [Unknown]
  - Neutrophil count increased [Recovered/Resolved]
  - Blood iron decreased [Recovered/Resolved]
  - Leukocytosis [Recovered/Resolved]
  - C-reactive protein increased [Recovered/Resolved]
  - Haemoglobin decreased [Recovered/Resolved]
  - Red blood cell sedimentation rate increased [Recovered/Resolved]
  - Thrombocytosis [Recovered/Resolved]
  - Drug ineffective [Unknown]

NARRATIVE: CASE EVENT DATE: 20200901
